FAERS Safety Report 16094648 (Version 1)
Quarter: 2019Q1

REPORT INFORMATION
  Report Type: Spontaneous
  Country: US (occurrence: US)
  Receive Date: 20190320
  Receipt Date: 20190320
  Transmission Date: 20190418
  Serious: Yes (Other)
  Sender: FDA-Public Use
  Company Number: US-BAYER-2019-049137

PATIENT

DRUGS (10)
  1. CELECOXIB. [Suspect]
     Active Substance: CELECOXIB
     Dosage: 200 MG
  2. NITROFURANTOIIN NS [Suspect]
     Active Substance: NITROFURANTOIN SODIUM
  3. DIPHENHYDRAMINE HYDROCHLORIDE. [Suspect]
     Active Substance: DIPHENHYDRAMINE HYDROCHLORIDE
  4. CIPROFLOXACIN. [Suspect]
     Active Substance: CIPROFLOXACIN
  5. DOXYCYCLINE. [Suspect]
     Active Substance: DOXYCYCLINE
  6. HYDROMORPHONE [Suspect]
     Active Substance: HYDROMORPHONE
  7. ERYTHROMYCIN. [Suspect]
     Active Substance: ERYTHROMYCIN
  8. THEOPHYLLINE [Suspect]
     Active Substance: THEOPHYLLINE ANHYDROUS
  9. BAYER ASPIRIN [Suspect]
     Active Substance: ASPIRIN
     Dosage: UNK
  10. CEFACLOR. [Suspect]
     Active Substance: CEFACLOR

REACTIONS (2)
  - Anaphylactic reaction [Unknown]
  - Drug hypersensitivity [Unknown]
